FAERS Safety Report 9282359 (Version 2)
Quarter: 2017Q3

REPORT INFORMATION
  Report Type: Report from Study
  Country: US (occurrence: US)
  Receive Date: 20130510
  Receipt Date: 20170914
  Transmission Date: 20171128
  Serious: Yes (Death, Other)
  Sender: FDA-Public Use
  Company Number: US-CELGENEUS-163-C4047-10070597

PATIENT

DRUGS (5)
  1. DEXAMETHASONE ORAL [Suspect]
     Active Substance: DEXAMETHASONE
     Indication: AMYLOIDOSIS
     Dosage: 40 MILLIGRAM
     Route: 048
  2. CC-4047 [Suspect]
     Active Substance: POMALIDOMIDE
     Dosage: 4 MILLIGRAM
     Route: 048
  3. CC-4047 [Suspect]
     Active Substance: POMALIDOMIDE
     Indication: AMYLOIDOSIS
     Dosage: 2 MILLIGRAM
     Route: 048
  4. ASPIRIN. [Concomitant]
     Active Substance: ASPIRIN
     Indication: THROMBOSIS PROPHYLAXIS
     Route: 065
  5. CC-4047 [Suspect]
     Active Substance: POMALIDOMIDE
     Dosage: 4 MILLIGRAM
     Route: 048

REACTIONS (49)
  - Death [Fatal]
  - Hyperuricaemia [Unknown]
  - Alanine aminotransferase increased [Unknown]
  - Muscular weakness [Unknown]
  - Diarrhoea [Unknown]
  - Lymphopenia [Unknown]
  - Agitation [Unknown]
  - Rash [Unknown]
  - Hyperkalaemia [Unknown]
  - Deep vein thrombosis [Unknown]
  - Decreased appetite [Unknown]
  - Diplopia [Unknown]
  - Urinary incontinence [Unknown]
  - Hyperglycaemia [Unknown]
  - Anxiety [Unknown]
  - Pollakiuria [Unknown]
  - Blood creatinine increased [Unknown]
  - Neuralgia [Unknown]
  - Mood swings [Unknown]
  - Insomnia [Unknown]
  - Nausea [Unknown]
  - Infection [Fatal]
  - Pleural effusion [Unknown]
  - International normalised ratio increased [Unknown]
  - Thrombocytopenia [Unknown]
  - Contusion [Unknown]
  - Myalgia [Unknown]
  - Dizziness [Unknown]
  - Constipation [Unknown]
  - Fatigue [Unknown]
  - Oedema peripheral [Unknown]
  - Hyponatraemia [Unknown]
  - Blood glucose increased [Unknown]
  - Memory impairment [Unknown]
  - Cardiac amyloidosis [Fatal]
  - Febrile neutropenia [Unknown]
  - Dysphagia [Unknown]
  - Dyspepsia [Unknown]
  - Neutropenia [Unknown]
  - Peripheral sensory neuropathy [Unknown]
  - Leukopenia [Unknown]
  - Vision blurred [Unknown]
  - Confusional state [Unknown]
  - Vitreous haemorrhage [Unknown]
  - Decubitus ulcer [Unknown]
  - Hypokalaemia [Unknown]
  - Anaemia [Unknown]
  - Bone marrow failure [Unknown]
  - Blood alkaline phosphatase increased [Unknown]
